FAERS Safety Report 9766665 (Version 1)
Quarter: 2013Q4

REPORT INFORMATION
  Report Type: Spontaneous
  Country: US (occurrence: US)
  Receive Date: 20131217
  Receipt Date: 20131217
  Transmission Date: 20140711
  Serious: No
  Sender: FDA-Public Use
  Company Number: US-BIOGENIDEC-2013BI117706

PATIENT
  Sex: Male
  Weight: 68 kg

DRUGS (11)
  1. TECFIDERA [Suspect]
     Indication: PRODUCT USED FOR UNKNOWN INDICATION
     Route: 048
  2. PROZAC [Concomitant]
  3. VALLUM [Concomitant]
  4. GABAPENTIN [Concomitant]
  5. OXYBUTYNIN [Concomitant]
  6. BACLOFEN [Concomitant]
  7. FISH OIL [Concomitant]
  8. VITAMIN C [Concomitant]
  9. VITAMIN D [Concomitant]
  10. CRANBERRY [Concomitant]
  11. MODAFINIL [Concomitant]

REACTIONS (1)
  - Muscle spasms [Unknown]
